FAERS Safety Report 10101609 (Version 1)
Quarter: 2014Q2

REPORT INFORMATION
  Report Type: Spontaneous
  Country: US (occurrence: None)
  Receive Date: 20140423
  Receipt Date: 20140423
  Transmission Date: 20141212
  Serious: No
  Sender: FDA-Public Use
  Company Number: None

PATIENT
  Age: 54 Year
  Sex: Female
  Weight: 63.5 kg

DRUGS (2)
  1. CRESTOR [Suspect]
     Indication: BLOOD CHOLESTEROL INCREASED
     Dosage: 1 PILL ONCE DAILY TAKEN BY MOUTH
     Route: 048
     Dates: start: 20090701, end: 20140418
  2. CRESTOR [Suspect]
     Indication: LOW DENSITY LIPOPROTEIN INCREASED
     Dosage: 1 PILL ONCE DAILY TAKEN BY MOUTH
     Route: 048
     Dates: start: 20090701, end: 20140418

REACTIONS (10)
  - Pain in extremity [None]
  - Arthralgia [None]
  - Arthralgia [None]
  - Neck pain [None]
  - Musculoskeletal pain [None]
  - Pain in extremity [None]
  - Pain [None]
  - Alanine aminotransferase increased [None]
  - Muscle disorder [None]
  - Hepatitis [None]
